FAERS Safety Report 20727195 (Version 4)
Quarter: 2024Q3

REPORT INFORMATION
  Report Type: Report from Study
  Country: US (occurrence: US)
  Receive Date: 20220419
  Receipt Date: 20240722
  Transmission Date: 20241017
  Serious: Yes (Hospitalization)
  Sender: JAZZ
  Company Number: US-GW PHARMA-2022-US-011691

PATIENT
  Sex: Female

DRUGS (3)
  1. EPIDIOLEX [Suspect]
     Active Substance: CANNABIDIOL
     Indication: Lennox-Gastaut syndrome
     Dosage: 3.6 MILLILITER
     Dates: start: 201910
  2. EPIDIOLEX [Suspect]
     Active Substance: CANNABIDIOL
     Dosage: 2 MILLILITER
     Dates: start: 202206
  3. EPIDIOLEX [Suspect]
     Active Substance: CANNABIDIOL
     Dosage: 2.3 MILLILITER (G-TUBE)
     Dates: start: 201910

REACTIONS (3)
  - Hospitalisation [Unknown]
  - Hospitalisation [Unknown]
  - Product administration interrupted [Unknown]
